FAERS Safety Report 9994708 (Version 1)
Quarter: 2014Q1

REPORT INFORMATION
  Report Type: Spontaneous
  Country: US (occurrence: None)
  Receive Date: 20140307
  Receipt Date: 20140307
  Transmission Date: 20141002
  Serious: Yes (Hospitalization)
  Sender: FDA-Public Use
  Company Number: None

PATIENT
  Age: 78 Year
  Sex: Female
  Weight: 63.45 kg

DRUGS (1)
  1. DOXORUBICIN HYDROCHLORIDE [Suspect]
     Dates: end: 20130415

REACTIONS (7)
  - Deep vein thrombosis [None]
  - Pulmonary embolism [None]
  - Cardiomyopathy [None]
  - Staphylococcal bacteraemia [None]
  - Skin exfoliation [None]
  - Radiation injury [None]
  - Ischaemic cardiomyopathy [None]
